FAERS Safety Report 7804538 (Version 3)
Quarter: 2013Q3

REPORT INFORMATION
  Report Type: Report from Study
  Country: MX (occurrence: MX)
  Receive Date: 20110208
  Receipt Date: 20130728
  Transmission Date: 20140515
  Serious: Yes (Other)
  Sender: FDA-Public Use
  Company Number: PHHY2011MX06853

PATIENT
  Sex: Female

DRUGS (6)
  1. CO-DIOVAN [Suspect]
     Indication: HYPERTENSION
     Dosage: 1 DF (160/12.5 MG), DAILY
     Route: 048
     Dates: start: 200601
  2. DIOVAN [Suspect]
     Dosage: 320 MG, DAILY
     Dates: start: 20070901
  3. LOGIMAX [Suspect]
     Dosage: UNK UKN, UNK
     Dates: start: 20070901
  4. GLYCERYL TRINITRATE [Concomitant]
  5. ISOSORBIDE [Concomitant]
  6. NIFEDIPINE [Concomitant]

REACTIONS (4)
  - Myocardial infarction [Recovered/Resolved]
  - Depression [Recovering/Resolving]
  - Blood pressure increased [Recovered/Resolved]
  - Anxiety [Unknown]
